FAERS Safety Report 5914778-9 (Version None)
Quarter: 2008Q4

REPORT INFORMATION
  Report Type: 
  Country: None (occurrence: None)
  Receive Date: 20081010
  Receipt Date: 20080930
  Transmission Date: 20090506
  Serious: Yes (Other)
  Sender: FDA-Public Use
  Company Number: US-ROCHE-588928

PATIENT
  Sex: Female
  Weight: 85.7 kg

DRUGS (2)
  1. CAPECITABINE [Suspect]
     Dosage: DOSE: 1000 MG AM AND 1000 MG PM.
     Route: 048
     Dates: start: 20080705
  2. ZOMETA [Concomitant]

REACTIONS (1)
  - NEOPLASM PROGRESSION [None]
